FAERS Safety Report 10547674 (Version 1)
Quarter: 2014Q4

REPORT INFORMATION
  Report Type: Spontaneous
  Country: US (occurrence: None)
  Receive Date: 20141015
  Receipt Date: 20141015
  Transmission Date: 20150529
  Serious: No
  Sender: FDA-Public Use
  Company Number: 2014US003610

PATIENT
  Age: 78 Year
  Sex: Female
  Weight: 67 kg

DRUGS (11)
  1. MUCINEX (GUAIFENESIN) [Concomitant]
  2. DOXAZOSIN MESYLATE (DOXAZOSIN MESILATE) [Concomitant]
  3. MIRAPEX [Concomitant]
     Active Substance: PRAMIPEXOLE DIHYDROCHLORIDE
  4. LEVOXYL (LEVOTHYROXINE SODIUM) [Concomitant]
  5. ASPIRIN. [Concomitant]
     Active Substance: ASPIRIN
  6. ACYCLOVIR. [Concomitant]
     Active Substance: ACYCLOVIR
  7. IRBESARTAN. [Concomitant]
     Active Substance: IRBESARTAN
  8. GABAPENTIN. [Concomitant]
     Active Substance: GABAPENTIN
  9. CALCIUM + D (CALCIUM CARBONATE, COLECALCIFEROL) [Concomitant]
  10. ICLUSIG [Suspect]
     Active Substance: PONATINIB
     Indication: CHRONIC MYELOID LEUKAEMIA
     Route: 048
     Dates: start: 20140730
  11. CELEBREX [Concomitant]
     Active Substance: CELECOXIB

REACTIONS (2)
  - Constipation [None]
  - Arthralgia [None]

NARRATIVE: CASE EVENT DATE: 20140816
